FAERS Safety Report 23466836 (Version 3)
Quarter: 2024Q1

REPORT INFORMATION
  Report Type: Spontaneous
  Country: FI (occurrence: FI)
  Receive Date: 20240201
  Receipt Date: 20240226
  Transmission Date: 20240410
  Serious: Yes (Life-Threatening, Hospitalization, Other)
  Sender: FDA-Public Use
  Company Number: FI-Accord-403867

PATIENT
  Age: 70 Year
  Sex: Female
  Weight: 96.0 kg

DRUGS (46)
  1. CARBOPLATIN [Suspect]
     Active Substance: CARBOPLATIN
     Indication: Diffuse large B-cell lymphoma stage II
     Dosage: 5 AUC, CYCLE 1 - ONWARDS
     Route: 042
     Dates: start: 20231213
  2. ETOPOSIDE [Suspect]
     Active Substance: ETOPOSIDE
     Indication: Diffuse large B-cell lymphoma stage II
     Dosage: CYCLE 1
     Route: 042
     Dates: start: 20231212, end: 20231214
  3. RITUXIMAB [Suspect]
     Active Substance: RITUXIMAB
     Indication: Diffuse large B-cell lymphoma stage II
     Dosage: CYCLE 1 - ONWARDS
     Route: 042
     Dates: start: 20231212
  4. IFOSFAMIDE [Suspect]
     Active Substance: IFOSFAMIDE
     Indication: Diffuse large B-cell lymphoma stage II
     Dosage: CYCLE 1
     Route: 042
     Dates: start: 20231213, end: 20231214
  5. EPCORITAMAB [Concomitant]
     Active Substance: EPCORITAMAB
     Indication: Diffuse large B-cell lymphoma stage II
     Dosage: C1D1
     Route: 058
     Dates: start: 20231214, end: 20231214
  6. HICET [Concomitant]
     Indication: Premedication
     Dosage: 10 MG
     Route: 048
     Dates: start: 20240104, end: 20240104
  7. ACETAMINOPHEN [Concomitant]
     Active Substance: ACETAMINOPHEN
     Indication: Premedication
     Dosage: 1 G
     Route: 048
     Dates: start: 20240104, end: 20240104
  8. PREDNISOLONE [Concomitant]
     Active Substance: PREDNISOLONE
     Indication: Prophylaxis
     Dosage: 100 MG
     Route: 048
     Dates: start: 20231221, end: 20231224
  9. DEXAMETHASONE [Concomitant]
     Active Substance: DEXAMETHASONE
     Indication: Prophylaxis
     Dosage: 7.5 MG
     Route: 048
     Dates: start: 20240102, end: 20240102
  10. HYDROCORTISONE [Concomitant]
     Active Substance: HYDROCORTISONE
     Dates: start: 20231218
  11. POTASSIUM CHLORIDE [Concomitant]
     Active Substance: POTASSIUM CHLORIDE
     Dates: start: 20230928
  12. PANTOPRAZOLE SODIUM [Concomitant]
     Active Substance: PANTOPRAZOLE SODIUM
     Dates: start: 20230925
  13. LEVOTHYROXINE [Concomitant]
     Active Substance: LEVOTHYROXINE\LEVOTHYROXINE SODIUM
     Dates: start: 20201109
  14. ENOXAPARIN SODIUM [Concomitant]
     Active Substance: ENOXAPARIN SODIUM
     Dates: start: 20230925
  15. OXAZEPAM [Concomitant]
     Active Substance: OXAZEPAM
     Dates: start: 20231204
  16. FUROSEMIDE [Concomitant]
     Active Substance: FUROSEMIDE
     Dates: start: 20231212
  17. PEGFILGRASTIM [Concomitant]
     Active Substance: PEGFILGRASTIM
     Dates: start: 20230929
  18. ARANESP [Concomitant]
     Active Substance: DARBEPOETIN ALFA
     Dates: start: 20231222
  19. PANADOL [Concomitant]
     Active Substance: ACETAMINOPHEN
     Dates: start: 20230929
  20. DIFLUCAN [Concomitant]
     Active Substance: FLUCONAZOLE
     Dates: start: 20231222
  21. NYSTATIN [Concomitant]
     Active Substance: NYSTATIN
     Dates: start: 20231222
  22. CEFUROXIME [Concomitant]
     Active Substance: CEFUROXIME
     Dates: start: 20231228, end: 20231231
  23. IBUPROFEN [Concomitant]
     Active Substance: IBUPROFEN
     Dates: start: 20231229, end: 20231230
  24. FUROSEMIDE [Concomitant]
     Active Substance: FUROSEMIDE
     Dates: start: 20230925
  25. ONDANSETRON [Concomitant]
     Active Substance: ONDANSETRON
     Dates: start: 20230925
  26. POLYETHYLENE GLYCOL 4000 [Concomitant]
     Active Substance: POLYETHYLENE GLYCOL 4000
     Dates: start: 20230929
  27. BECLOMET [Concomitant]
     Dates: start: 20201209
  28. PRIMPERAN [Concomitant]
     Active Substance: METOCLOPRAMIDE HYDROCHLORIDE
     Dates: start: 20230925
  29. CEPHALEXIN [Concomitant]
     Active Substance: CEPHALEXIN
     Dates: start: 20231231, end: 20240104
  30. SODIUM CHLORIDE [Concomitant]
     Active Substance: SODIUM CHLORIDE
     Dates: start: 20240102, end: 20240104
  31. ELECTROLYTES NOS [Concomitant]
     Active Substance: ELECTROLYTES NOS
     Dates: start: 20231228, end: 20231229
  32. ACLOVIR [Concomitant]
     Dates: start: 20240111, end: 20240117
  33. ALOXI [Concomitant]
     Active Substance: PALONOSETRON HYDROCHLORIDE
     Dates: start: 20240125, end: 20240125
  34. EPCORITAMAB [Concomitant]
     Active Substance: EPCORITAMAB
     Indication: Diffuse large B-cell lymphoma stage II
     Dosage: C1D8
     Route: 058
     Dates: start: 20231221, end: 20231221
  35. EPCORITAMAB [Concomitant]
     Active Substance: EPCORITAMAB
     Indication: Diffuse large B-cell lymphoma stage II
     Dosage: C1D15
     Route: 058
     Dates: start: 20231228
  36. IFOSFAMIDE [Suspect]
     Active Substance: IFOSFAMIDE
     Indication: Diffuse large B-cell lymphoma stage II
     Dosage: CYCLE 2
     Route: 042
     Dates: start: 20240103, end: 20240104
  37. ETOPOSIDE [Suspect]
     Active Substance: ETOPOSIDE
     Indication: Diffuse large B-cell lymphoma stage II
     Dosage: CYCLE 2
     Route: 042
     Dates: start: 20240102, end: 20240104
  38. DEXAMETHASONE [Concomitant]
     Active Substance: DEXAMETHASONE
     Indication: Prophylaxis
     Dosage: 20 MG
     Route: 048
     Dates: start: 20240103, end: 20240103
  39. PREDNISOLONE [Concomitant]
     Active Substance: PREDNISOLONE
     Indication: Prophylaxis
     Dosage: 100 MG
     Route: 048
     Dates: start: 20231228, end: 20231231
  40. IFOSFAMIDE [Suspect]
     Active Substance: IFOSFAMIDE
     Indication: Diffuse large B-cell lymphoma stage II
     Dosage: CYCLE 3
     Route: 042
     Dates: start: 20240124, end: 20240125
  41. ETOPOSIDE [Suspect]
     Active Substance: ETOPOSIDE
     Indication: Diffuse large B-cell lymphoma stage II
     Dosage: CYCLE 3
     Route: 042
     Dates: start: 20240123, end: 20240125
  42. ACETAMINOPHEN [Concomitant]
     Active Substance: ACETAMINOPHEN
     Indication: Premedication
     Dosage: 1 G
     Route: 048
     Dates: start: 20240111, end: 20240111
  43. ACETAMINOPHEN [Concomitant]
     Active Substance: ACETAMINOPHEN
     Indication: Premedication
     Dosage: 1 G
     Route: 048
     Dates: start: 20240118, end: 20240118
  44. HICET [Concomitant]
     Indication: Premedication
     Dosage: 10 MG
     Route: 048
     Dates: start: 20240111, end: 20240111
  45. HICET [Concomitant]
     Indication: Premedication
     Dosage: 10 MG
     Route: 048
     Dates: start: 20240118, end: 20240118
  46. PREDNISOLONE [Concomitant]
     Active Substance: PREDNISOLONE
     Indication: Prophylaxis
     Dosage: 100 MG
     Route: 048
     Dates: start: 20240104, end: 20240107

REACTIONS (2)
  - Neutropenic infection [Recovered/Resolved]
  - Cytokine release syndrome [Recovered/Resolved]

NARRATIVE: CASE EVENT DATE: 20240111
